FAERS Safety Report 6791399-X (Version None)
Quarter: 2010Q2

REPORT INFORMATION
  Report Type: 
  Country: None (occurrence: None)
  Receive Date: 20100624
  Receipt Date: 20100526
  Transmission Date: 20101027
  Serious: No
  Sender: FDA-Public Use
  Company Number: US-BAUSCH-2010BL002841

PATIENT

DRUGS (1)
  1. BESIVANCE [Suspect]
     Indication: CORNEAL ABRASION
     Route: 047

REACTIONS (1)
  - MEDICATION RESIDUE [None]
